FAERS Safety Report 17129530 (Version 1)
Quarter: 2019Q4

REPORT INFORMATION
  Report Type: Spontaneous
  Country: US (occurrence: US)
  Receive Date: 20191209
  Receipt Date: 20191209
  Transmission Date: 20200122
  Serious: No
  Sender: FDA-Public Use
  Company Number: US-PFIZER INC-2019345987

PATIENT
  Age: 65 Year
  Sex: Female
  Weight: 66.21 kg

DRUGS (2)
  1. IBRANCE [Suspect]
     Active Substance: PALBOCICLIB
     Indication: BREAST CANCER STAGE IV
     Dosage: 125 MG, CYCLIC [ONCE DAILY FOR 3 WEEKS ON THEN 1 WEEK OFF] [21 DAYS THEN OFF FOR 7 DAYS]
     Route: 048
     Dates: start: 20190718
  2. LETROZOLE. [Concomitant]
     Active Substance: LETROZOLE
     Indication: BREAST CANCER
     Dosage: 2.5 MG, 1X/DAY
     Route: 048
     Dates: start: 201907

REACTIONS (1)
  - Weight increased [Unknown]
